FAERS Safety Report 17717183 (Version 4)
Quarter: 2021Q2

REPORT INFORMATION
  Report Type: Spontaneous
  Country: US (occurrence: US)
  Receive Date: 20200428
  Receipt Date: 20210503
  Transmission Date: 20210716
  Serious: No
  Sender: FDA-Public Use
  Company Number: US-PFIZER INC-2020113570

PATIENT
  Age: 69 Year
  Sex: Male
  Weight: 96.16 kg

DRUGS (2)
  1. LYRICA [Suspect]
     Active Substance: PREGABALIN
     Indication: CENTRAL PAIN SYNDROME
     Dosage: 100 MG, AS NEEDED (TAKE 1 CAPSULE (100 MG TOTAL) BY MOUTH 3 TIMES A DAY AS NEEDED)
     Route: 048
  2. LYRICA [Suspect]
     Active Substance: PREGABALIN
     Indication: PAIN
     Dosage: 100 MG, 3X/DAY
     Route: 048

REACTIONS (2)
  - Illness [Unknown]
  - Peripheral swelling [Unknown]
